FAERS Safety Report 20189596 (Version 6)
Quarter: 2022Q1

REPORT INFORMATION
  Report Type: Spontaneous
  Country: FR (occurrence: FR)
  Receive Date: 20211215
  Receipt Date: 20220328
  Transmission Date: 20220424
  Serious: Yes (Hospitalization, Other)
  Sender: FDA-Public Use
  Company Number: None

PATIENT
  Age: 77 Year
  Sex: Female
  Weight: 76 kg

DRUGS (24)
  1. LANSOPRAZOLE [Suspect]
     Active Substance: LANSOPRAZOLE
     Indication: Product used for unknown indication
     Dosage: 1 DOSAGE FORM
     Route: 048
  2. PAROXETINE [Suspect]
     Active Substance: PAROXETINE
     Indication: Depression
     Dosage: 1 DOSAGE FORM, QD, YEARS
     Route: 048
  3. MIANSERIN [Suspect]
     Active Substance: MIANSERIN
     Indication: Depression
     Dosage: 1 DOSAGE FORM, QD, YEARS
     Route: 048
  4. MIANSERIN [Suspect]
     Active Substance: MIANSERIN
     Indication: Dementia Alzheimer^s type
     Dosage: 1 DOSAGE FORM, QD,
     Route: 048
  5. MIANSERIN [Suspect]
     Active Substance: MIANSERIN
     Dosage: 1 DOSAGE FORM, QD
     Route: 048
  6. GALANTAMINE [Suspect]
     Active Substance: GALANTAMINE
     Indication: Dementia Alzheimer^s type
     Dosage: 1 DOSAGE FORM, QD, YEARS
     Route: 048
  7. RISPERIDONE [Suspect]
     Active Substance: RISPERIDONE
     Indication: Product used for unknown indication
     Dosage: UNK
     Route: 048
  8. MEMANTINE [Suspect]
     Active Substance: MEMANTINE
     Indication: Dementia Alzheimer^s type
     Dosage: 1 DOSAGE FORM, QD
     Route: 048
  9. RISPERDAL [Suspect]
     Active Substance: RISPERIDONE
     Indication: Product used for unknown indication
     Dosage: UNK, YEARS
     Route: 048
  10. KARDEGIC [Suspect]
     Active Substance: ASPIRIN DL-LYSINE
     Indication: Product used for unknown indication
     Dosage: 1 DOSAGE FORM, QD YEARS
     Route: 048
  11. HYDREA [Suspect]
     Active Substance: HYDROXYUREA
     Indication: Polycythaemia vera
     Dosage: 1 DOSAGE FORM, QD, YEARS
     Route: 048
  12. MEMANTINE HYDROCHLORIDE [Suspect]
     Active Substance: MEMANTINE HYDROCHLORIDE
     Indication: Dementia Alzheimer^s type
     Dosage: 1 DOSAGE FORM, QD, YEARS
     Route: 048
  13. HYDROXYUREA [Suspect]
     Active Substance: HYDROXYUREA
     Indication: Polycythaemia vera
     Dosage: 1 DOSAGE FORM, QD
     Route: 048
  14. TRIACETIN [Suspect]
     Active Substance: TRIACETIN
     Indication: Dementia Alzheimer^s type
     Dosage: 1 DOSAGE FORM, QD
  15. POTASSIUM [Concomitant]
     Active Substance: POTASSIUM
     Dosage: UNK
  16. TALC [Concomitant]
     Active Substance: TALC
     Dosage: UNK
  17. INDIGOTINE [Concomitant]
     Dosage: UNK
  18. MAGNESIUM STEARATE [Concomitant]
     Active Substance: MAGNESIUM STEARATE
     Indication: Polycythaemia vera
     Dosage: 1 DOSAGE FORM, QD
  19. LACTOSE MONOHYDRATE [Concomitant]
     Active Substance: LACTOSE MONOHYDRATE
  20. FD+C RED NO. 3 [Concomitant]
     Active Substance: FD+C RED NO. 3
     Dosage: UNK
  21. GLYCINE [Concomitant]
     Active Substance: GLYCINE
     Dosage: 1 DOSAGE FORM, QD
     Route: 048
  22. SORBITOL [Concomitant]
     Active Substance: SORBITOL
     Dosage: UNK
  23. POLYSORBATE 80 [Concomitant]
     Active Substance: POLYSORBATE 80
     Dosage: UNK
  24. SIMETHICONE (DIMETHICONE) [Concomitant]
     Active Substance: DIMETHICONE
     Dosage: UNK

REACTIONS (1)
  - Squamous cell carcinoma [Recovered/Resolved with Sequelae]

NARRATIVE: CASE EVENT DATE: 20210401
